FAERS Safety Report 11878778 (Version 5)
Quarter: 2016Q1

REPORT INFORMATION
  Report Type: Spontaneous
  Country: JP (occurrence: JP)
  Receive Date: 20151230
  Receipt Date: 20160216
  Transmission Date: 20160526
  Serious: Yes (Life-Threatening, Hospitalization, Other)
  Sender: FDA-Public Use
  Company Number: JP-PFIZER INC-2015468880

PATIENT
  Age: 83 Year
  Sex: Female
  Weight: 36 kg

DRUGS (12)
  1. LANSOPRAZOLE. [Concomitant]
     Active Substance: LANSOPRAZOLE
     Indication: PROPHYLAXIS AGAINST GASTROINTESTINAL ULCER
     Dosage: 30 MG, DAILY
     Dates: start: 20151029
  2. TEGRETOL [Concomitant]
     Active Substance: CARBAMAZEPINE
     Dosage: UNK
     Dates: start: 20151119, end: 20151130
  3. ENSURE LIQUIED [Concomitant]
     Indication: DYSPHAGIA
     Dosage: 125 ML, DAILY
     Dates: start: 20151009, end: 20151201
  4. FUROSEMIDE. [Concomitant]
     Active Substance: FUROSEMIDE
     Indication: OEDEMA
     Dosage: 20 MG, DAILY
     Dates: start: 20151112
  5. ALEVIATIN [Concomitant]
     Active Substance: PHENYTOIN SODIUM
     Indication: SEIZURE
     Dosage: 200 MG, DAILY
     Dates: start: 20151002, end: 20151029
  6. FOSPHENYTOIN SODIUM. [Suspect]
     Active Substance: FOSPHENYTOIN SODIUM
     Dosage: 500 MG, DAILY
     Route: 042
     Dates: start: 20151201
  7. KEPPRA [Concomitant]
     Active Substance: LEVETIRACETAM
     Dosage: 1000 MG, DAILY
     Dates: start: 20151016, end: 20151023
  8. DEPAKENE [Concomitant]
     Active Substance: VALPROIC ACID
     Indication: SEIZURE
     Dosage: 12 ML, DAILY
     Route: 048
     Dates: start: 20150930, end: 20151002
  9. FOSPHENYTOIN SODIUM. [Suspect]
     Active Substance: FOSPHENYTOIN SODIUM
     Dosage: 187.5 MG, (MAINTENACE ADMINISTRATION) (0.3 MG/KG/MIN (500MG/60MIN (WEIGHT: 36.1 KG)))
     Route: 042
     Dates: end: 20150929
  10. FOSPHENYTOIN SODIUM. [Suspect]
     Active Substance: FOSPHENYTOIN SODIUM
     Indication: PARTIAL SEIZURES
     Dosage: 500 MG/DAY AS INITIAL ADMINISTRATION TO 187.5 MG AS MAINTENANCE ADMINISTRATION (0.3MG/KG/MIN (500MG/
     Route: 042
     Dates: start: 20150918
  11. DEPAKENE [Concomitant]
     Active Substance: VALPROIC ACID
     Indication: SEIZURE
     Dosage: 8 MG, DAILY
     Dates: start: 20151029, end: 20151119
  12. SODIUM CHLORIDE. [Concomitant]
     Active Substance: SODIUM CHLORIDE
     Indication: HYPONATRAEMIA
     Dosage: 3 G, DAILY
     Dates: start: 20151030

REACTIONS (8)
  - Blood pressure decreased [Recovered/Resolved]
  - Hypoxia [Recovered/Resolved]
  - Anaphylactoid reaction [Unknown]
  - Angioedema [Unknown]
  - Rash generalised [Recovered/Resolved]
  - Hot flush [Unknown]
  - Dyspnoea [Unknown]
  - Generalised oedema [Recovered/Resolved]

NARRATIVE: CASE EVENT DATE: 20151201
